FAERS Safety Report 4450625-2 (Version None)
Quarter: 2004Q3

REPORT INFORMATION
  Report Type: 
  Country: None (occurrence: None)
  Receive Date: 20040913
  Receipt Date: 20040524
  Transmission Date: 20050211
  Serious: No
  Sender: FDA-Public Use
  Company Number: 2004-BP-04021BP(0)

PATIENT
  Age: 84 Year
  Sex: Female
  Weight: 47.2 kg

DRUGS (10)
  1. SPIRIVA [Suspect]
     Indication: CHRONIC OBSTRUCTIVE AIRWAYS DISEASE
     Dosage: 18 MCG (18 MCG), IH
     Route: 055
     Dates: start: 20040520
  2. TARZAC [Concomitant]
  3. DUONEB [Concomitant]
  4. PREVACID [Concomitant]
  5. MAALOX (MAALOX) [Concomitant]
  6. VITAMINS (VITAMINS) [Concomitant]
  7. ALBUTEROL [Concomitant]
  8. DETROL LA [Concomitant]
  9. TUSSIONEX [Concomitant]
  10. ACIPHEX [Concomitant]

REACTIONS (1)
  - VISION BLURRED [None]
